FAERS Safety Report 11044355 (Version 1)
Quarter: 2015Q2

REPORT INFORMATION
  Report Type: Spontaneous
  Country: GB (occurrence: GB)
  Receive Date: 20150417
  Receipt Date: 20150417
  Transmission Date: 20150821
  Serious: Yes (Hospitalization)
  Sender: FDA-Public Use
  Company Number: GB-TEVA-554730ACC

PATIENT
  Age: 68 Year
  Sex: Female
  Weight: 101.6 kg

DRUGS (5)
  1. LORATADINE. [Suspect]
     Active Substance: LORATADINE
     Indication: ADVERSE DRUG REACTION
     Dosage: 10 MG
  2. OMEPRAZOLE. [Concomitant]
     Active Substance: OMEPRAZOLE
     Dosage: 20 MILLIGRAM DAILY; 20MG 1 DAILY
  3. INDAPAMIDE. [Concomitant]
     Active Substance: INDAPAMIDE
     Dosage: 2.5 MILLIGRAM DAILY; 2.5MG 1 IN THE MORNING
  4. NITROFURANTOIN. [Concomitant]
     Active Substance: NITROFURANTOIN
     Dosage: 50 MILLIGRAM DAILY; 50MG 1 AT NIGHT
  5. ENALAPRIL [Concomitant]
     Active Substance: ENALAPRIL
     Dosage: 5 MILLIGRAM DAILY; 5MG 1 DAILY

REACTIONS (8)
  - Chest discomfort [Unknown]
  - Wheezing [Unknown]
  - Tremor [Unknown]
  - Withdrawal syndrome [Unknown]
  - Fear [Unknown]
  - Nightmare [Unknown]
  - Cough [Unknown]
  - Lower respiratory tract infection [Unknown]
